FAERS Safety Report 7402044-4 (Version None)
Quarter: 2011Q2

REPORT INFORMATION
  Report Type: 
  Country: None (occurrence: None)
  Receive Date: 20110408
  Receipt Date: 20110401
  Transmission Date: 20111010
  Serious: Yes (Other)
  Sender: FDA-Public Use
  Company Number: CA-PFIZER INC-2011073913

PATIENT
  Sex: Female

DRUGS (1)
  1. VFEND [Suspect]
     Indication: CEREBRAL ASPERGILLOSIS
     Dosage: UNK
     Route: 048
     Dates: start: 20110101

REACTIONS (1)
  - CSF TEST ABNORMAL [None]
